FAERS Safety Report 18119564 (Version 1)
Quarter: 2020Q3

REPORT INFORMATION
  Report Type: Other
  Country: DE (occurrence: DE)
  Receive Date: 20200806
  Receipt Date: 20200806
  Transmission Date: 20201103
  Serious: Yes (Hospitalization, Other)
  Sender: FDA-Public Use
  Company Number: DE-GLENMARK PHARMACEUTICALS-2020GMK048930

PATIENT

DRUGS (3)
  1. IBUPROFEN. [Suspect]
     Active Substance: IBUPROFEN
     Indication: SUICIDAL IDEATION
     Dosage: 2 DOSAGE FORM, TOTAL (NUMBER OF UNITS IN IINTERVAL: 1)
     Route: 048
     Dates: start: 20200220
  2. GUANFACINA [Suspect]
     Active Substance: GUANFACINE
     Indication: SUICIDAL IDEATION
     Dosage: 2 MILLIGRAM, TOTAL (NUMBER OF UNITS IN IINTERVAL: 26)
     Route: 048
     Dates: start: 20200220
  3. ZONISAMIDE. [Suspect]
     Active Substance: ZONISAMIDE
     Indication: SUICIDAL IDEATION
     Dosage: 100 MILLIGRAM, TOTAL (NUMBER OF UNITS IN IINTERVAL: 39)
     Route: 048
     Dates: start: 20200220

REACTIONS (8)
  - Metabolic acidosis [Recovered/Resolved]
  - Intentional overdose [Recovered/Resolved]
  - Sinus arrhythmia [Recovered/Resolved]
  - Hypotension [Recovered/Resolved]
  - Vomiting [Recovered/Resolved]
  - Bradycardia [Recovered/Resolved]
  - Hypokalaemia [Recovered/Resolved]
  - Somnolence [Recovered/Resolved]

NARRATIVE: CASE EVENT DATE: 20200220
